FAERS Safety Report 6592977-3 (Version None)
Quarter: 2010Q1

REPORT INFORMATION
  Report Type: 
  Country: None (occurrence: None)
  Receive Date: 20100222
  Receipt Date: 20100210
  Transmission Date: 20100710
  Serious: Yes (Hospitalization)
  Sender: FDA-Public Use
  Company Number: SK-BRISTOL-MYERS SQUIBB COMPANY-14979736

PATIENT
  Age: 50 Year
  Sex: Male

DRUGS (9)
  1. ARIPIPRAZOLE [Suspect]
     Indication: SCHIZOPHRENIA
     Route: 048
     Dates: start: 20091229
  2. RISPERIDONE [Concomitant]
     Dates: start: 20100126, end: 20100202
  3. AKINETON [Concomitant]
     Dosage: AKINETON AUS
     Dates: start: 20100116, end: 20100202
  4. LITHIUM CARBONATE [Concomitant]
     Dates: start: 20100126, end: 20100208
  5. GERODORM [Concomitant]
     Dates: start: 20100119, end: 20100208
  6. ZOPICLONE [Concomitant]
     Dates: start: 20100112
  7. TISERCIN [Concomitant]
     Dates: start: 20100208
  8. HALOPERIDOL [Concomitant]
     Dates: start: 20100208
  9. DIAZEPAM [Concomitant]
     Dates: start: 20100208, end: 20100208

REACTIONS (1)
  - SCHIZOPHRENIA [None]
